FAERS Safety Report 7223808-6 (Version None)
Quarter: 2011Q1

REPORT INFORMATION
  Report Type: 
  Country: None (occurrence: None)
  Receive Date: 20110112
  Receipt Date: 20101207
  Transmission Date: 20110831
  Serious: No
  Sender: FDA-Public Use
  Company Number: US-ALLERGAN-1015878US

PATIENT
  Age: 78 Year
  Sex: Female

DRUGS (3)
  1. OPTIVE [Concomitant]
  2. RESTASIS [Suspect]
     Indication: DRY EYE
     Dosage: 1 GTT, BID
     Route: 047
     Dates: start: 20100201, end: 20101201
  3. LOTEMAX [Concomitant]
     Dosage: 1 GTT, QD
     Route: 047
     Dates: start: 20101028

REACTIONS (3)
  - SCLERAL HYPERAEMIA [None]
  - EYE PAIN [None]
  - EYE IRRITATION [None]
